FAERS Safety Report 5506855-1 (Version None)
Quarter: 2007Q4

REPORT INFORMATION
  Report Type: 
  Country: None (occurrence: None)
  Receive Date: 20071105
  Receipt Date: 20071025
  Transmission Date: 20080405
  Serious: Yes (Hospitalization, Disabling)
  Sender: FDA-Public Use
  Company Number: US-SANOFI-SYNTHELABO-A03200606533

PATIENT
  Sex: Female
  Weight: 72.6 kg

DRUGS (13)
  1. AMBIEN [Suspect]
     Indication: INSOMNIA
     Route: 048
     Dates: end: 20060601
  2. AMBIEN [Suspect]
     Route: 048
     Dates: start: 20060325, end: 20060601
  3. SEROQUEL [Concomitant]
     Dosage: UNK
     Route: 048
  4. ADDERALL 10 [Concomitant]
     Dosage: 10 MG AT 1 P.M.
     Route: 048
     Dates: start: 20060327
  5. TRAZODONE HCL [Concomitant]
     Dosage: UNK
     Route: 048
  6. XANAX [Concomitant]
     Dosage: 0.5 MG Q6H PRN
     Route: 048
  7. EFFEXOR [Concomitant]
     Dosage: 2-3 TABLETS Q AM
     Route: 048
  8. ASPIRIN [Concomitant]
     Route: 048
  9. ALCOHOL [Concomitant]
     Dosage: UNK
     Route: 048
  10. PREVACID [Concomitant]
     Route: 048
     Dates: start: 20060322
  11. RESTORIL [Concomitant]
     Route: 048
     Dates: start: 20060322, end: 20060325
  12. IBUPROFEN [Concomitant]
     Dosage: 2 TABLET EVERY 4 HOURS PRN
     Route: 048
     Dates: start: 20060322
  13. LIBRIUM [Concomitant]
     Dosage: UNK
     Route: 048

REACTIONS (16)
  - AMNESIA [None]
  - ANXIETY [None]
  - ASTHENIA [None]
  - CHEST PAIN [None]
  - COMMUNICATION DISORDER [None]
  - DEPRESSED LEVEL OF CONSCIOUSNESS [None]
  - DEPRESSION [None]
  - DRUG INEFFECTIVE [None]
  - HALLUCINATION [None]
  - HYPERLIPIDAEMIA [None]
  - LOSS OF CONSCIOUSNESS [None]
  - NAUSEA [None]
  - SELF INJURIOUS BEHAVIOUR [None]
  - SLEEP TALKING [None]
  - SUICIDAL IDEATION [None]
  - TREMOR [None]
